FAERS Safety Report 9537536 (Version 1)
Quarter: 2013Q3

REPORT INFORMATION
  Report Type: Report from Study
  Country: NL (occurrence: NL)
  Receive Date: 20130919
  Receipt Date: 20130919
  Transmission Date: 20140515
  Serious: Yes (Hospitalization)
  Sender: FDA-Public Use
  Company Number: PHHY2013NL103788

PATIENT
  Sex: Male

DRUGS (3)
  1. ZOMETA [Suspect]
     Dosage: UNK
  2. ZOMETA [Suspect]
     Dosage: UNK
     Dates: start: 20110304
  3. ZOMETA [Suspect]
     Dosage: UNK
     Dates: start: 20130819

REACTIONS (2)
  - Fall [Unknown]
  - Malaise [Recovering/Resolving]
